FAERS Safety Report 8135304-2 (Version None)
Quarter: 2012Q1

REPORT INFORMATION
  Report Type: 
  Country: None (occurrence: None)
  Receive Date: 20120214
  Receipt Date: 20120209
  Transmission Date: 20120608
  Serious: Yes (Other)
  Sender: FDA-Public Use
  Company Number: US-PFIZER INC-2012035973

PATIENT
  Sex: Female

DRUGS (1)
  1. LYRICA [Suspect]
     Dosage: UNK
     Route: 048
     Dates: start: 20120208

REACTIONS (5)
  - COGNITIVE DISORDER [None]
  - FEELING ABNORMAL [None]
  - FEELING DRUNK [None]
  - INSOMNIA [None]
  - POOR QUALITY SLEEP [None]
